FAERS Safety Report 6071847-3 (Version None)
Quarter: 2009Q1

REPORT INFORMATION
  Report Type: 
  Country: None (occurrence: None)
  Receive Date: 20090205
  Receipt Date: 20090120
  Transmission Date: 20090719
  Serious: Yes (Life-Threatening, Hospitalization)
  Sender: FDA-Public Use
  Company Number: 2009S1001183

PATIENT
  Age: 52 Year
  Sex: Male

DRUGS (12)
  1. ESCITALOPRAM [Suspect]
     Indication: DEPRESSION
     Dosage: ORAL
     Route: 048
  2. DIAZEPAM [Suspect]
     Indication: DEPRESSION
     Dosage: ORAL
     Route: 048
  3. IMOVANE (ZOPICLONE) (7.5 MG) [Suspect]
     Indication: DEPRESSION
     Dosage: ORAL
     Route: 048
  4. LORAZEPAM [Suspect]
     Indication: DEPRESSION
     Dosage: ORAL
     Route: 048
  5. MS CONTIN [Suspect]
     Dosage: ORAL
     Route: 048
  6. MS CONTIN [Suspect]
     Dosage: ORAL
     Route: 048
  7. MS CONTIN [Suspect]
     Dosage: ORAL
     Route: 048
  8. OXYCOCET (OXYCOCET) (5 MG) [Suspect]
     Dosage: ORAL
     Route: 048
  9. CELEXA [Suspect]
     Dosage: ORAL
     Route: 048
  10. OXYCONTIN (OXYCODONE HYDROCHLORIDE) (10 MG) [Suspect]
     Dosage: ORAL
     Route: 048
  11. OXYCONTIN [Suspect]
     Dosage: ORAL
     Route: 048
  12. RAMIPRIL [Concomitant]

REACTIONS (14)
  - ACTIVATED PARTIAL THROMBOPLASTIN TIME PROLONGED [None]
  - BLOOD CREATINE INCREASED [None]
  - BLOOD CREATINE PHOSPHOKINASE INCREASED [None]
  - BLOOD PH DECREASED [None]
  - BLOOD PRESSURE DECREASED [None]
  - BUNDLE BRANCH BLOCK RIGHT [None]
  - DRUG SCREEN POSITIVE [None]
  - HEART RATE DECREASED [None]
  - HYPERKALAEMIA [None]
  - INTERNATIONAL NORMALISED RATIO INCREASED [None]
  - LOSS OF CONSCIOUSNESS [None]
  - NODAL RHYTHM [None]
  - OXYGEN SATURATION DECREASED [None]
  - SINUS TACHYCARDIA [None]
